FAERS Safety Report 8816161 (Version 2)
Quarter: 2012Q4

REPORT INFORMATION
  Report Type: 
  Country: US (occurrence: US)
  Receive Date: 20120929
  Receipt Date: 20121103
  Transmission Date: 20130627
  Serious: Yes (Hospitalization, Other)
  Sender: FDA-Public Use
  Company Number: US-US-EMD SERONO, INC.-7163263

PATIENT
  Age: 56 None
  Sex: Female

DRUGS (2)
  1. REBIF [Suspect]
     Indication: MULTIPLE SCLEROSIS
     Route: 058
     Dates: start: 20100917, end: 201209
  2. REBIF [Suspect]
     Route: 058
     Dates: start: 20121022

REACTIONS (9)
  - Suicide attempt [Recovering/Resolving]
  - Overdose [Recovering/Resolving]
  - Cerebrovascular accident [Not Recovered/Not Resolved]
  - Myocardial infarction [Unknown]
  - Stress [Unknown]
  - Fall [Unknown]
  - Hypoaesthesia [Unknown]
  - Urinary incontinence [Unknown]
  - Headache [Unknown]
